FAERS Safety Report 7971050-3 (Version None)
Quarter: 2011Q4

REPORT INFORMATION
  Report Type: 
  Country: None (occurrence: None)
  Receive Date: 20111212
  Receipt Date: 20111212
  Transmission Date: 20120403
  Serious: Yes (Other)
  Sender: FDA-Public Use
  Company Number: None

PATIENT
  Age: 77 Year
  Sex: Male

DRUGS (13)
  1. TOVIAZ [Concomitant]
     Indication: BENIGN PROSTATIC HYPERPLASIA
     Dosage: 4 MG
     Route: 048
  2. METFORMIN HCL [Concomitant]
     Route: 048
  3. REPAGLINIDE [Concomitant]
     Route: 048
  4. COLACE [Concomitant]
     Route: 048
  5. LEVOTHYROXINE SODIUM [Concomitant]
     Route: 048
  6. M.V.I. [Concomitant]
     Route: 048
  7. VITAMIN D [Concomitant]
     Route: 048
  8. DETROL LA [Suspect]
     Indication: BENIGN PROSTATIC HYPERPLASIA
     Dosage: 4 MG
     Route: 048
  9. DETROL LA [Suspect]
     Indication: TRANSURETHRAL PROSTATECTOMY
     Dosage: 4 MG
     Route: 048
  10. ROSUVASTATIN [Concomitant]
     Route: 048
  11. ASPIRIN [Concomitant]
     Route: 048
  12. FISH OIL [Concomitant]
     Indication: TRANSURETHRAL PROSTATECTOMY
     Route: 048
  13. PROPRANOLOL [Concomitant]
     Route: 048

REACTIONS (4)
  - BALANCE DISORDER [None]
  - DRUG EFFECT DECREASED [None]
  - CEREBROVASCULAR ACCIDENT [None]
  - FALL [None]
